FAERS Safety Report 9852163 (Version 1)
Quarter: 2013Q4

REPORT INFORMATION
  Report Type: Spontaneous
  Country: US (occurrence: None)
  Receive Date: 20131127
  Receipt Date: 20131127
  Transmission Date: 20140711
  Serious: No
  Sender: FDA-Public Use
  Company Number: 223699LEO

PATIENT
  Age: 55 Year
  Sex: Male

DRUGS (1)
  1. PICATO [Suspect]
     Indication: SOLAR LENTIGO
     Dosage: FOREHEAD, CHEEKS
     Route: 061
     Dates: start: 20130823, end: 20130825

REACTIONS (9)
  - Application site pain [None]
  - Application site swelling [None]
  - Eye swelling [None]
  - Drug administered at inappropriate site [None]
  - Application site erythema [None]
  - Application site dryness [None]
  - Application site pruritus [None]
  - Application site exfoliation [None]
  - Application site rash [None]
